FAERS Safety Report 5095359-9 (Version None)
Quarter: 2006Q3

REPORT INFORMATION
  Report Type: 
  Country: None (occurrence: None)
  Receive Date: 20060830
  Receipt Date: 20060814
  Transmission Date: 20061208
  Serious: Yes (Other)
  Sender: FDA-Public Use
  Company Number: US200608003083

PATIENT
  Age: 40 Year
  Sex: Male

DRUGS (3)
  1. FORTEO [Suspect]
     Indication: OSTEOPOROSIS
     Dosage: D/F
     Dates: start: 20060727
  2. DIASTAT [Concomitant]
  3. FORTEO [Concomitant]

REACTIONS (3)
  - CONDITION AGGRAVATED [None]
  - CONVULSION [None]
  - PHARMACEUTICAL PRODUCT COMPLAINT [None]
